FAERS Safety Report 24171755 (Version 1)
Quarter: 2024Q3

REPORT INFORMATION
  Report Type: Report from Study
  Country: US (occurrence: US)
  Receive Date: 20240805
  Receipt Date: 20240805
  Transmission Date: 20241017
  Serious: Yes (Hospitalization)
  Sender: JOHNSON AND JOHNSON
  Company Number: US-JNJFOC-20240802188

PATIENT
  Age: 6 Decade
  Sex: Female

DRUGS (4)
  1. SPRAVATO [Suspect]
     Active Substance: ESKETAMINE
     Indication: Depression
     Dosage: ^^56 MG, 7 TOTAL DOSES^^
     Dates: start: 20200123, end: 20200213
  2. SPRAVATO [Suspect]
     Active Substance: ESKETAMINE
     Dosage: ^^84 MG, 75 TOTAL DOSES^^
     Dates: start: 20200218, end: 20210120
  3. SPRAVATO [Suspect]
     Active Substance: ESKETAMINE
     Dosage: ^^56 MG, 1 TOTAL DOSES^^
     Dates: start: 20210127, end: 20210127
  4. SPRAVATO [Suspect]
     Active Substance: ESKETAMINE
     Dosage: ^^84 MG, 82 TOTAL DOSES^^
     Dates: start: 20210203, end: 20240731

REACTIONS (1)
  - Eating disorder [Unknown]
